FAERS Safety Report 7519818-1 (Version None)
Quarter: 2011Q2

REPORT INFORMATION
  Report Type: 
  Country: None (occurrence: None)
  Receive Date: 20110524
  Receipt Date: 20110513
  Transmission Date: 20111010
  Serious: Yes (Hospitalization)
  Sender: FDA-Public Use
  Company Number: 2010US004868

PATIENT
  Age: 15 Month
  Sex: Male

DRUGS (1)
  1. TACROLIMUS [Suspect]
     Indication: DERMATITIS ATOPIC
     Dosage: 0.003%, /D, TOPICAL
     Route: 061
     Dates: start: 20090803

REACTIONS (1)
  - THERMAL BURN [None]
